FAERS Safety Report 4726924-3 (Version None)
Quarter: 2005Q3

REPORT INFORMATION
  Report Type: 
  Country: None (occurrence: None)
  Receive Date: 20050725
  Receipt Date: 20050725
  Transmission Date: 20060218
  Serious: Yes (Other)
  Sender: FDA-Public Use
  Company Number: None

PATIENT
  Age: 68 Year
  Sex: Female
  Weight: 66 kg

DRUGS (2)
  1. ASTRAMORPH PF [Suspect]
     Indication: PAIN
     Dosage: 0.25MG ONCE INTRATHECAL
     Route: 037
     Dates: start: 20050714, end: 20050714
  2. HIP ARTHROPLASTY [Concomitant]

REACTIONS (3)
  - HYPERHIDROSIS [None]
  - HYPOTHERMIA [None]
  - NAUSEA [None]
